FAERS Safety Report 8478376-8 (Version None)
Quarter: 2012Q2

REPORT INFORMATION
  Report Type: 
  Country: None (occurrence: None)
  Receive Date: 20120629
  Receipt Date: 20120619
  Transmission Date: 20120825
  Serious: Yes (Other)
  Sender: FDA-Public Use
  Company Number: BR-ROCHE-1015201

PATIENT
  Sex: Female

DRUGS (2)
  1. XOLAIR [Suspect]
     Indication: ASTHMA
     Dates: start: 20061006
  2. XOLAIR [Suspect]
     Dates: start: 20111010

REACTIONS (17)
  - EPISTAXIS [None]
  - ASTHMA [None]
  - MALAISE [None]
  - PAIN IN EXTREMITY [None]
  - VOMITING [None]
  - EAR PAIN [None]
  - OEDEMA MOUTH [None]
  - FATIGUE [None]
  - CHEST DISCOMFORT [None]
  - ARTHRALGIA [None]
  - FEELING ABNORMAL [None]
  - HYPERSENSITIVITY [None]
  - ASTHENIA [None]
  - WHEEZING [None]
  - DIZZINESS [None]
  - COUGH [None]
  - DYSPNOEA [None]
